FAERS Safety Report 21824327 (Version 1)
Quarter: 2023Q1

REPORT INFORMATION
  Report Type: Spontaneous
  Country: US (occurrence: None)
  Receive Date: 20230105
  Receipt Date: 20230105
  Transmission Date: 20230418
  Serious: Yes (Hospitalization)
  Sender: FDA-Public Use
  Company Number: None

PATIENT
  Age: 69 Year
  Sex: Male
  Weight: 89.8 kg

DRUGS (3)
  1. CARBOPLATIN [Suspect]
     Active Substance: CARBOPLATIN
     Dates: end: 20221102
  2. CARBOPLATIN [Suspect]
     Active Substance: CARBOPLATIN
     Dates: end: 20221102
  3. TAXOL [Suspect]
     Active Substance: PACLITAXEL
     Dates: end: 20221102

REACTIONS (4)
  - Lymphocyte count decreased [None]
  - Lymphopenia [None]
  - White blood cell count decreased [None]
  - Neutrophil count decreased [None]

NARRATIVE: CASE EVENT DATE: 20221025
